FAERS Safety Report 5425974-1 (Version None)
Quarter: 2007Q3

REPORT INFORMATION
  Report Type: 
  Country: None (occurrence: None)
  Receive Date: 20070827
  Receipt Date: 20070815
  Transmission Date: 20080115
  Serious: Yes (Disabling)
  Sender: FDA-Public Use
  Company Number: GB-NOVOPROD-266542

PATIENT

DRUGS (1)
  1. LEVEMIR [Suspect]
     Indication: DIABETES MELLITUS
     Dates: start: 20070301

REACTIONS (3)
  - BLINDNESS [None]
  - HAEMORRHAGE [None]
  - VITREOUS FLOATERS [None]
